FAERS Safety Report 6076634-8 (Version None)
Quarter: 2009Q1

REPORT INFORMATION
  Report Type: 
  Country: None (occurrence: None)
  Receive Date: 20090213
  Receipt Date: 20090113
  Transmission Date: 20090719
  Serious: Yes (Other)
  Sender: FDA-Public Use
  Company Number: US-BRISTOL-MYERS SQUIBB COMPANY-14472039

PATIENT
  Age: 46 Year
  Sex: Female

DRUGS (3)
  1. IXEMPRA KIT [Suspect]
     Indication: BREAST CANCER
  2. BENADRYL [Concomitant]
     Indication: PREMEDICATION
  3. ZANTAC [Concomitant]
     Indication: PREMEDICATION

REACTIONS (3)
  - DYSPNOEA [None]
  - ERYTHEMA [None]
  - OXYGEN SATURATION DECREASED [None]
